FAERS Safety Report 15935948 (Version 1)
Quarter: 2019Q1

REPORT INFORMATION
  Report Type: Spontaneous
  Country: AR (occurrence: AR)
  Receive Date: 20190208
  Receipt Date: 20190208
  Transmission Date: 20190417
  Serious: Yes (Hospitalization)
  Sender: FDA-Public Use
  Company Number: AR-STRIDES ARCOLAB LIMITED-2019SP001122

PATIENT
  Age: 50 Year
  Sex: Male

DRUGS (4)
  1. CLONAZEPAM. [Concomitant]
     Active Substance: CLONAZEPAM
     Indication: SCHIZOPHRENIA
     Dosage: UNK
     Route: 065
  2. RISPERIDONE. [Suspect]
     Active Substance: RISPERIDONE
     Indication: SCHIZOPHRENIA
     Dosage: 2MG, DAILY
     Route: 065
     Dates: start: 2012
  3. MAGNESIUM VALPROATE [Concomitant]
     Active Substance: VALPROATE MAGNESIUM
     Indication: SCHIZOPHRENIA
     Dosage: UNK
     Route: 065
  4. PROMETHAZINE HYDROCHLORIDE. [Suspect]
     Active Substance: PROMETHAZINE HYDROCHLORIDE
     Indication: SCHIZOPHRENIA
     Dosage: 25MG, DAILY
     Route: 065
     Dates: start: 2012

REACTIONS (5)
  - Anuria [Unknown]
  - Myoglobinuria [Unknown]
  - Rhabdomyolysis [Unknown]
  - Chromaturia [Unknown]
  - Dehydration [Unknown]
